FAERS Safety Report 14303055 (Version 5)
Quarter: 2018Q2

REPORT INFORMATION
  Report Type: Spontaneous
  Country: ES (occurrence: ES)
  Receive Date: 20171219
  Receipt Date: 20180629
  Transmission Date: 20180711
  Serious: Yes (Life-Threatening, Other)
  Sender: FDA-Public Use
  Company Number: ES-BAUSCH-BL-2017-034089

PATIENT
  Age: 5 Year
  Sex: Male

DRUGS (2)
  1. RASBURICASE [Concomitant]
     Active Substance: RASBURICASE
     Indication: ACUTE KIDNEY INJURY
  2. DEXAMETHASONE. [Suspect]
     Active Substance: DEXAMETHASONE
     Indication: ACUTE KIDNEY INJURY
     Dosage: ADMINISTERED DURING SURGERY ON DAY 14
     Route: 065

REACTIONS (2)
  - Hyperkalaemia [Recovered/Resolved]
  - Ventricular tachycardia [Recovered/Resolved]
